FAERS Safety Report 24232671 (Version 1)
Quarter: 2024Q3

REPORT INFORMATION
  Report Type: Spontaneous
  Country: US (occurrence: None)
  Receive Date: 20240820
  Receipt Date: 20240820
  Transmission Date: 20241017
  Serious: Yes (Other)
  Sender: Public
  Company Number: None

PATIENT
  Age: 57 Year
  Sex: Female
  Weight: 67.5 kg

DRUGS (4)
  1. DENOSUMAB [Suspect]
     Active Substance: DENOSUMAB
     Indication: Osteoporosis
  2. PREDNISONE [Concomitant]
     Active Substance: PREDNISONE
  3. MELATONIN [Concomitant]
     Active Substance: MELATONIN
  4. DOXYLAMINE [Concomitant]
     Active Substance: DOXYLAMINE

REACTIONS (7)
  - Petechiae [None]
  - Pruritus [None]
  - Neck pain [None]
  - Back pain [None]
  - Pain in jaw [None]
  - Nausea [None]
  - Headache [None]

NARRATIVE: CASE EVENT DATE: 20240815
